FAERS Safety Report 21326088 (Version 1)
Quarter: 2022Q3

REPORT INFORMATION
  Report Type: Report from Study
  Country: CO (occurrence: CO)
  Receive Date: 20220913
  Receipt Date: 20220913
  Transmission Date: 20221026
  Serious: Yes (Death)
  Sender: FDA-Public Use
  Company Number: CO-AstraZeneca-2022A311576

PATIENT
  Age: 0 Year
  Sex: Female

DRUGS (1)
  1. SYNAGIS [Suspect]
     Active Substance: PALIVIZUMAB
     Indication: Respiratory tract infection
     Dates: start: 20220801

REACTIONS (1)
  - Death [Fatal]

NARRATIVE: CASE EVENT DATE: 20220808
